FAERS Safety Report 25140631 (Version 2)
Quarter: 2025Q3

REPORT INFORMATION
  Report Type: Report from Study
  Country: EU (occurrence: EU)
  Receive Date: 20250331
  Receipt Date: 20250718
  Transmission Date: 20251021
  Serious: Yes (Life-Threatening, Hospitalization)
  Sender: PFIZER
  Company Number: EU-PFIZER INC-PV202500036740

PATIENT
  Age: 78 Year
  Sex: Male
  Weight: 87 kg

DRUGS (12)
  1. INOTUZUMAB OZOGAMICIN [Suspect]
     Active Substance: INOTUZUMAB OZOGAMICIN
     Indication: Acute lymphocytic leukaemia
     Route: 042
     Dates: start: 20201007, end: 20201007
  2. LANSOPRAZOLE [Concomitant]
     Active Substance: LANSOPRAZOLE
  3. FUROSEMIDE [Concomitant]
     Active Substance: FUROSEMIDE
  4. CANRENONE [Concomitant]
     Active Substance: CANRENONE
  5. DOXAZOSIN MESYLATE [Concomitant]
     Active Substance: DOXAZOSIN MESYLATE
  6. ALLOPURINOL [Concomitant]
     Active Substance: ALLOPURINOL
  7. SERTRALINE [Concomitant]
     Active Substance: SERTRALINE HYDROCHLORIDE
  8. ALPRAZOLAM [Concomitant]
     Active Substance: ALPRAZOLAM
  9. INSULIN NOS [Concomitant]
     Active Substance: INSULIN NOS
  10. ENOXAPARIN [Concomitant]
     Active Substance: ENOXAPARIN
  11. PREDNISONE [Concomitant]
     Active Substance: PREDNISONE
  12. VINCRISTINE [Concomitant]
     Active Substance: VINCRISTINE

REACTIONS (1)
  - Hepatorenal syndrome [Recovered/Resolved]

NARRATIVE: CASE EVENT DATE: 20201011
